FAERS Safety Report 24909905 (Version 1)
Quarter: 2025Q1

REPORT INFORMATION
  Report Type: Spontaneous
  Country: US (occurrence: US)
  Receive Date: 20250131
  Receipt Date: 20250131
  Transmission Date: 20250408
  Serious: Yes (Life-Threatening)
  Sender: BAUSCH AND LOMB
  Company Number: US-BAUSCHBL-2025BNL001010

PATIENT
  Age: 34 Year
  Sex: Male

DRUGS (16)
  1. PHENYLEPHRINE [Suspect]
     Active Substance: PHENYLEPHRINE
     Indication: Distributive shock
     Route: 065
  2. TOBRAMYCIN [Suspect]
     Active Substance: TOBRAMYCIN
     Indication: Pneumonia klebsiella
     Route: 065
  3. RIFAMPIN [Suspect]
     Active Substance: RIFAMPIN
     Indication: Antibiotic therapy
     Route: 065
  4. NOREPINEPHRINE [Suspect]
     Active Substance: NOREPINEPHRINE
     Indication: Distributive shock
     Route: 065
  5. LYPRESSIN [Suspect]
     Active Substance: LYPRESSIN
     Indication: Distributive shock
     Route: 065
  6. INSULIN (INSULIN HUMAN) [Concomitant]
     Indication: Diabetic ketoacidosis
  7. PIPERACILLIN SODIUM\TAZOBACTAM SODIUM [Concomitant]
     Active Substance: PIPERACILLIN SODIUM\TAZOBACTAM SODIUM
     Indication: Pneumonia
  8. PIPERACILLIN SODIUM\TAZOBACTAM SODIUM [Concomitant]
     Active Substance: PIPERACILLIN SODIUM\TAZOBACTAM SODIUM
     Indication: Liver abscess
  9. MEROPENEM [Concomitant]
     Active Substance: MEROPENEM
     Indication: Pneumonia
  10. MEROPENEM [Concomitant]
     Active Substance: MEROPENEM
     Indication: Liver abscess
  11. LINEZOLID [Concomitant]
     Active Substance: LINEZOLID
     Indication: Pneumonia
  12. LINEZOLID [Concomitant]
     Active Substance: LINEZOLID
     Indication: Liver abscess
  13. MICAFUNGIN [Concomitant]
     Active Substance: MICAFUNGIN SODIUM
     Indication: Antifungal treatment
  14. OXYGEN [Concomitant]
     Active Substance: OXYGEN
     Indication: Tachycardia
  15. OXYGEN [Concomitant]
     Active Substance: OXYGEN
     Indication: Tachypnoea
  16. OXYGEN [Concomitant]
     Active Substance: OXYGEN
     Indication: Hypoxia

REACTIONS (1)
  - Therapy non-responder [Unknown]
